FAERS Safety Report 10995109 (Version 3)
Quarter: 2015Q2

REPORT INFORMATION
  Report Type: Spontaneous
  Country: US (occurrence: US)
  Receive Date: 20150407
  Receipt Date: 20150616
  Transmission Date: 20150821
  Serious: Yes (Hospitalization)
  Sender: FDA-Public Use
  Company Number: US-BAYER-2015-116357

PATIENT
  Age: 25 Year
  Sex: Female
  Weight: 54.42 kg

DRUGS (2)
  1. MIRENA [Suspect]
     Active Substance: LEVONORGESTREL
     Indication: CONTRACEPTION
     Dosage: 20 MCG/24HR, CONT
     Dates: start: 20071023, end: 20110324
  2. ADDERALL [Concomitant]
     Active Substance: AMPHETAMINE ASPARTATE\AMPHETAMINE SULFATE\DEXTROAMPHETAMINE SACCHARATE\DEXTROAMPHETAMINE SULFATE
     Dosage: UNK
     Dates: start: 20110324

REACTIONS (8)
  - Uterine perforation [None]
  - Emotional distress [None]
  - Abdominal adhesions [None]
  - Endometriosis [None]
  - Drug ineffective [None]
  - Pregnancy with contraceptive device [None]
  - Injury [None]
  - Procedural pain [None]

NARRATIVE: CASE EVENT DATE: 201103
